FAERS Safety Report 12995487 (Version 1)
Quarter: 2016Q4

REPORT INFORMATION
  Report Type: Spontaneous
  Country: TR (occurrence: TR)
  Receive Date: 20161202
  Receipt Date: 20161202
  Transmission Date: 20170207
  Serious: Yes (Death, Congenital Anomaly, Other)
  Sender: FDA-Public Use
  Company Number: TR-ABBVIE-16P-161-1798834-00

PATIENT
  Sex: Male
  Weight: 1.71 kg

DRUGS (1)
  1. VALPROATE SODIUM. [Suspect]
     Active Substance: VALPROATE SODIUM
     Indication: MATERNAL EXPOSURE TIMING UNSPECIFIED
     Route: 064

REACTIONS (14)
  - Respiratory failure [Fatal]
  - Ectopic kidney [Fatal]
  - Congenital nose malformation [Fatal]
  - Limb hypoplasia congenital [Fatal]
  - Patent ductus arteriosus [Fatal]
  - Hypertelorism of orbit [Fatal]
  - Hiatus hernia [Fatal]
  - Foetal anticonvulsant syndrome [Fatal]
  - Retrognathia [Fatal]
  - Pulmonary hypertension [Fatal]
  - Low set ears [Fatal]
  - Congenital foot malformation [Fatal]
  - Congenital hand malformation [Fatal]
  - Foetal exposure during pregnancy [Unknown]
